FAERS Safety Report 21232805 (Version 7)
Quarter: 2022Q3

REPORT INFORMATION
  Report Type: Report from Study
  Country: US (occurrence: None)
  Receive Date: 20220819
  Receipt Date: 20220828
  Transmission Date: 20221026
  Serious: Yes (Hospitalization)
  Sender: FDA-Public Use
  Company Number: US-ROCHE-3163661

PATIENT
  Age: 68 Year
  Sex: Male
  Weight: 61.69 kg

DRUGS (15)
  1. ATEZOLIZUMAB [Suspect]
     Active Substance: ATEZOLIZUMAB
     Indication: Colorectal cancer metastatic
     Dosage: ON 21-JUL-2022,START DATE OF MOST RECENT DOSE OF STUDY DRUG PRIOR TO AE/SAE
     Route: 041
     Dates: start: 20220630
  2. LEVAQUIN [Concomitant]
     Active Substance: LEVOFLOXACIN
     Indication: Cough
     Route: 048
     Dates: start: 20220713, end: 20220720
  3. CETIRIZINE HYDROCHLORIDE [Concomitant]
     Active Substance: CETIRIZINE HYDROCHLORIDE
     Indication: Cough
     Route: 048
     Dates: start: 20220713
  4. AVASTIN [Concomitant]
     Active Substance: BEVACIZUMAB
     Dates: start: 2019
  5. LEUCOVORIN [Concomitant]
     Active Substance: LEUCOVORIN
     Dates: start: 2019
  6. LEUCOVORIN [Concomitant]
     Active Substance: LEUCOVORIN
     Dates: start: 2019
  7. FLUOROURACIL [Concomitant]
     Active Substance: FLUOROURACIL
     Dates: start: 2019
  8. FLUOROURACIL [Concomitant]
     Active Substance: FLUOROURACIL
     Dates: start: 2019
  9. OXALIPLATIN [Concomitant]
     Active Substance: OXALIPLATIN
     Dates: start: 2019
  10. IRINOTECAN [Concomitant]
     Active Substance: IRINOTECAN
     Dates: start: 2019
  11. PANADOL [Concomitant]
     Active Substance: ACETAMINOPHEN
     Indication: Pyrexia
     Route: 048
     Dates: start: 20220811
  12. CARAFATE [Concomitant]
     Active Substance: SUCRALFATE
     Indication: Varices oesophageal
     Route: 048
     Dates: start: 20220811
  13. CARAFATE [Concomitant]
     Active Substance: SUCRALFATE
     Indication: Gastritis
  14. PEPCID [Concomitant]
     Active Substance: FAMOTIDINE
     Indication: Gastritis
     Route: 048
     Dates: start: 20220811
  15. PEPCID [Concomitant]
     Active Substance: FAMOTIDINE
     Indication: Varices oesophageal

REACTIONS (1)
  - Cholangitis [Not Recovered/Not Resolved]

NARRATIVE: CASE EVENT DATE: 20220816
